FAERS Safety Report 17845816 (Version 2)
Quarter: 2020Q2

REPORT INFORMATION
  Report Type: Report from Study
  Country: US (occurrence: US)
  Receive Date: 20200601
  Receipt Date: 20200604
  Transmission Date: 20200714
  Serious: No
  Sender: FDA-Public Use
  Company Number: US-GLAXOSMITHKLINE-US2020AMR089245

PATIENT
  Age: 73 Year
  Sex: Female

DRUGS (2)
  1. NIRAPARIB [Suspect]
     Active Substance: NIRAPARIB
     Indication: OVARIAN CANCER
     Dosage: 200 MG, QD
     Dates: start: 20200519
  2. NIRAPARIB [Suspect]
     Active Substance: NIRAPARIB
     Dosage: 200 MG, DAILY
     Dates: start: 20200530

REACTIONS (10)
  - Nervousness [Unknown]
  - Insomnia [Unknown]
  - White blood cell count decreased [Recovering/Resolving]
  - Headache [Not Recovered/Not Resolved]
  - Nausea [Recovered/Resolved]
  - Underdose [Unknown]
  - Blood pressure fluctuation [Unknown]
  - Heart rate increased [Unknown]
  - Constipation [Unknown]
  - Off label use [Unknown]
